FAERS Safety Report 15649756 (Version 4)
Quarter: 2018Q4

REPORT INFORMATION
  Report Type: Spontaneous
  Country: DE (occurrence: DE)
  Receive Date: 20181122
  Receipt Date: 20181128
  Transmission Date: 20190205
  Serious: Yes (Other)
  Sender: FDA-Public Use
  Company Number: PHHY2018DE159640

PATIENT
  Age: 16 Year
  Sex: Female
  Weight: 77 kg

DRUGS (4)
  1. HUMIRA [Suspect]
     Active Substance: ADALIMUMAB
     Indication: JUVENILE IDIOPATHIC ARTHRITIS
     Dosage: 40 MG, Q2W
     Route: 058
     Dates: start: 20180305
  2. DECORTIN H [Concomitant]
     Active Substance: PREDNISOLONE
     Indication: PRODUCT USED FOR UNKNOWN INDICATION
     Dosage: UNK
     Route: 065
  3. PREDNISOLON [Suspect]
     Active Substance: PREDNISOLONE
     Indication: UVEITIS
     Dosage: UNK
     Route: 065
  4. PREDNISOLON [Suspect]
     Active Substance: PREDNISOLONE
     Dosage: 1 DF, UNK
     Route: 048
     Dates: start: 20180119

REACTIONS (4)
  - Cataract [Not Recovered/Not Resolved]
  - Uveitis [Not Recovered/Not Resolved]
  - Juvenile idiopathic arthritis [Not Recovered/Not Resolved]
  - Glaucoma [Unknown]

NARRATIVE: CASE EVENT DATE: 2018
